FAERS Safety Report 4404520-5 (Version None)
Quarter: 2004Q3

REPORT INFORMATION
  Report Type: 
  Country: None (occurrence: None)
  Receive Date: 20040721
  Receipt Date: 20040721
  Transmission Date: 20050211
  Serious: Yes (Hospitalization)
  Sender: FDA-Public Use
  Company Number: None

PATIENT
  Age: 77 Year
  Sex: Male

DRUGS (11)
  1. WARFARIN SODIUM [Suspect]
     Indication: ATRIAL FIBRILLATION
     Dosage: 10 MG MWFSUN, 5 MG T,T,SAT
  2. ASPIRIN [Suspect]
     Indication: CORONARY ARTERY DISEASE
     Dosage: 81 MG
  3. GEMFIBROZIL [Concomitant]
  4. DIGOXIN [Concomitant]
  5. KCL TAB [Concomitant]
  6. TERAZOSIN HCL [Concomitant]
  7. LASIX [Concomitant]
  8. INSULIN [Concomitant]
  9. DOCUSATE [Concomitant]
  10. VALSARTAN [Concomitant]
  11. ATENOLOL [Concomitant]

REACTIONS (3)
  - DIZZINESS [None]
  - INTERNATIONAL NORMALISED RATIO INCREASED [None]
  - UPPER GASTROINTESTINAL HAEMORRHAGE [None]
